FAERS Safety Report 8521079-1 (Version None)
Quarter: 2012Q3

REPORT INFORMATION
  Report Type: 
  Country: None (occurrence: None)
  Receive Date: 20120719
  Receipt Date: 20120712
  Transmission Date: 20120928
  Serious: Yes (Death, Other)
  Sender: FDA-Public Use
  Company Number: CA-ROCHE-1078855

PATIENT
  Sex: Female
  Weight: 103.97 kg

DRUGS (3)
  1. SYNTHROID [Concomitant]
  2. ESCITALOPRAM [Concomitant]
  3. AVASTIN [Suspect]
     Indication: GLIOBLASTOMA
     Route: 042
     Dates: start: 20120531, end: 20120531

REACTIONS (2)
  - DEATH [None]
  - WOUND DEHISCENCE [None]
